FAERS Safety Report 8217774-4 (Version None)
Quarter: 2012Q1

REPORT INFORMATION
  Report Type: 
  Country: None (occurrence: None)
  Receive Date: 20120319
  Receipt Date: 20120316
  Transmission Date: 20120608
  Serious: Yes (Death)
  Sender: FDA-Public Use
  Company Number: US-JNJFOC-20120104901

PATIENT
  Sex: Female

DRUGS (8)
  1. REMICADE [Suspect]
     Route: 042
     Dates: start: 20110914
  2. METHOTREXATE [Concomitant]
     Route: 065
  3. REMICADE [Suspect]
     Route: 042
  4. REMICADE [Suspect]
     Indication: RHEUMATOID ARTHRITIS
     Route: 042
     Dates: start: 20111020
  5. FUROSEMIDE [Concomitant]
     Route: 065
  6. FOLIC ACID [Concomitant]
     Route: 065
  7. PREDNISONE [Concomitant]
     Route: 065
  8. MAXZIDE [Concomitant]
     Route: 065

REACTIONS (10)
  - VOMITING [None]
  - ASTHENIA [None]
  - FALL [None]
  - HEAD INJURY [None]
  - OEDEMA [None]
  - BACK PAIN [None]
  - ANAEMIA [None]
  - DEATH [None]
  - DEHYDRATION [None]
  - HYPOTENSION [None]
